FAERS Safety Report 6500221-8 (Version None)
Quarter: 2009Q4

REPORT INFORMATION
  Report Type: 
  Country: None (occurrence: None)
  Receive Date: 20091216
  Receipt Date: 20091204
  Transmission Date: 20100525
  Serious: Yes (Hospitalization)
  Sender: FDA-Public Use
  Company Number: FR-PFIZER INC-2009297911

PATIENT
  Age: 83 Year
  Sex: Female

DRUGS (6)
  1. TRIFLUCAN [Suspect]
     Indication: ERYSIPELAS
     Dosage: 50 MG, 1X/DAY
     Route: 048
     Dates: start: 20091008, end: 20091030
  2. TRIFLUCAN [Interacting]
     Dosage: UNK
  3. PARACETAMOL [Interacting]
     Indication: ERYSIPELAS
     Dosage: 1 G, 4X/DAY
     Route: 048
     Dates: start: 20091008, end: 20091028
  4. PREVISCAN [Interacting]
     Dosage: 15 MG, 1X/DAY
     Route: 048
     Dates: end: 20091028
  5. PREVISCAN [Interacting]
     Dosage: 5 MG DAILY
  6. AUGMENTIN [Interacting]
     Indication: ERYSIPELAS
     Dosage: 1 G, 3X/DAY
     Dates: start: 20091008, end: 20091030

REACTIONS (4)
  - ANAEMIA [None]
  - DRUG INTERACTION [None]
  - HAEMATOMA [None]
  - INTERNATIONAL NORMALISED RATIO INCREASED [None]
